FAERS Safety Report 21624177 (Version 1)
Quarter: 2022Q4

REPORT INFORMATION
  Report Type: Spontaneous
  Country: US (occurrence: US)
  Receive Date: 20221121
  Receipt Date: 20221121
  Transmission Date: 20230113
  Serious: Yes (Other)
  Sender: FDA-Public Use
  Company Number: US-SA-2022SA476872

PATIENT
  Sex: Male

DRUGS (5)
  1. ELOCTATE [Suspect]
     Active Substance: EFMOROCTOCOG ALFA
     Indication: Factor VIII deficiency
     Dosage: 900 U PRN, STRENGTH: 737 U, DAILY AS NEEDED
     Route: 042
     Dates: start: 202208
  2. ELOCTATE [Suspect]
     Active Substance: EFMOROCTOCOG ALFA
     Indication: Factor VIII deficiency
     Dosage: 900 U PRN, STRENGTH: 737 U, DAILY AS NEEDED
     Route: 042
     Dates: start: 202208
  3. ELOCTATE [Suspect]
     Active Substance: EFMOROCTOCOG ALFA
     Dosage: 900 U PRN, STRENGTH: 245U, DAILY AS NEEDED
     Route: 042
     Dates: start: 2022
  4. ELOCTATE [Suspect]
     Active Substance: EFMOROCTOCOG ALFA
     Dosage: 900 U PRN, STRENGTH: 245U, DAILY AS NEEDED
     Route: 042
     Dates: start: 2022
  5. HEMLIBRA [Concomitant]
     Active Substance: EMICIZUMAB-KXWH
     Indication: Prophylaxis

REACTIONS (1)
  - Haemorrhage [Not Recovered/Not Resolved]
